FAERS Safety Report 16844507 (Version 1)
Quarter: 2019Q3

REPORT INFORMATION
  Report Type: Spontaneous
  Country: GB (occurrence: GB)
  Receive Date: 20190924
  Receipt Date: 20190924
  Transmission Date: 20191005
  Serious: Yes (Other)
  Sender: FDA-Public Use
  Company Number: GB-ACCORD-155451

PATIENT
  Sex: Male
  Weight: 99.78 kg

DRUGS (8)
  1. AMLODIPINE [Concomitant]
     Active Substance: AMLODIPINE BESYLATE
  2. PARACETAMOL [Concomitant]
     Active Substance: ACETAMINOPHEN
  3. TRAMADOL. [Concomitant]
     Active Substance: TRAMADOL
  4. LANSOPRAZOLE. [Concomitant]
     Active Substance: LANSOPRAZOLE
  5. PRAVASTATIN. [Concomitant]
     Active Substance: PRAVASTATIN
  6. LOSARTAN. [Concomitant]
     Active Substance: LOSARTAN
  7. MEBEVERINE [Concomitant]
     Active Substance: MEBEVERINE
  8. AMITRIPTYLINE [Suspect]
     Active Substance: AMITRIPTYLINE
     Indication: INSOMNIA
     Route: 048
     Dates: start: 2010, end: 20190902

REACTIONS (3)
  - Depression [Recovered/Resolved]
  - Off label use [Unknown]
  - Cough [Recovered/Resolved]

NARRATIVE: CASE EVENT DATE: 2016
